FAERS Safety Report 6735604-4 (Version None)
Quarter: 2010Q2

REPORT INFORMATION
  Report Type: 
  Country: None (occurrence: None)
  Receive Date: 20100521
  Receipt Date: 20100512
  Transmission Date: 20101027
  Serious: Yes (Other)
  Sender: FDA-Public Use
  Company Number: FR-JNJFOC-20100407506

PATIENT
  Age: 38 Year
  Sex: Female
  Weight: 55 kg

DRUGS (4)
  1. REMICADE [Suspect]
     Indication: CROHN'S DISEASE
     Route: 042
     Dates: start: 20100316
  2. REMICADE [Suspect]
     Route: 042
     Dates: start: 20100316
  3. HYDROCORTISONE [Concomitant]
     Indication: PREMEDICATION
  4. IMUREL [Concomitant]
     Route: 048

REACTIONS (5)
  - ANXIETY [None]
  - DYSPNOEA [None]
  - INFUSION RELATED REACTION [None]
  - PALPITATIONS [None]
  - RASH SCARLATINIFORM [None]
